FAERS Safety Report 9605541 (Version 2)
Quarter: 2013Q4

REPORT INFORMATION
  Report Type: Spontaneous
  Country: US (occurrence: US)
  Receive Date: 20131008
  Receipt Date: 20131126
  Transmission Date: 20140711
  Serious: No
  Sender: FDA-Public Use
  Company Number: US-PFIZER INC-2013286640

PATIENT
  Age: 57 Year
  Sex: Male
  Weight: 68.93 kg

DRUGS (5)
  1. ATORVASTATIN CALCIUM [Suspect]
     Indication: BLOOD CHOLESTEROL INCREASED
     Dosage: 40 MG, ONCE A DAY
     Route: 048
     Dates: start: 2012
  2. LIPITOR [Suspect]
     Dosage: 40 MG, DAILY
     Route: 048
     Dates: start: 201208, end: 201308
  3. GLYBURIDE [Concomitant]
     Dosage: UNK
  4. METFORMIN [Concomitant]
     Dosage: UNK
  5. PLAVIX [Concomitant]
     Dosage: UNK

REACTIONS (4)
  - Neck pain [Recovering/Resolving]
  - Musculoskeletal pain [Not Recovered/Not Resolved]
  - Muscle spasms [Not Recovered/Not Resolved]
  - Muscular weakness [Recovered/Resolved]
